FAERS Safety Report 4651709-6 (Version None)
Quarter: 2005Q2

REPORT INFORMATION
  Report Type: 
  Country: None (occurrence: None)
  Receive Date: 20050404
  Receipt Date: 20041122
  Transmission Date: 20051028
  Serious: No
  Sender: FDA-Public Use
  Company Number: USA041184427

PATIENT
  Age: 78 Year
  Sex: Female

DRUGS (9)
  1. CYMBALTA [Suspect]
     Dosage: 60 MG AT BEDTIME
     Dates: start: 20041118
  2. WARFARIN SODIUM [Concomitant]
  3. OXYCODONE HCL [Concomitant]
  4. SYNTHROID [Concomitant]
  5. BUSPAR [Concomitant]
  6. LANOXIN (DIGOXIN STREULI) [Concomitant]
  7. SENNA [Concomitant]
  8. ZAROXOLYN [Concomitant]
  9. DETROL LA [Concomitant]

REACTIONS (1)
  - INTERNATIONAL NORMALISED RATIO INCREASED [None]
